FAERS Safety Report 19070273 (Version 4)
Quarter: 2021Q2

REPORT INFORMATION
  Report Type: Spontaneous
  Country: DE (occurrence: DE)
  Receive Date: 20210329
  Receipt Date: 20210624
  Transmission Date: 20210717
  Serious: Yes (Death, Hospitalization, Other)
  Sender: FDA-Public Use
  Company Number: DE-SEAGEN-2021SGN01673

PATIENT
  Age: 73 Year
  Sex: Male
  Weight: 90 kg

DRUGS (7)
  1. PANTOPRAZOLE [Concomitant]
     Active Substance: PANTOPRAZOLE
     Dosage: 40 MILLIGRAM
     Route: 048
  2. ASPIRIN. [Concomitant]
     Active Substance: ASPIRIN
     Indication: CORONARY ARTERY DISEASE
     Dosage: 100 MILLIGRAM
     Route: 048
  3. ADCETRIS [Suspect]
     Active Substance: BRENTUXIMAB VEDOTIN
     Indication: CUTANEOUS T-CELL LYMPHOMA
     Dosage: UNK
     Route: 065
     Dates: end: 20201221
  4. PARACETAMOL [Concomitant]
     Active Substance: ACETAMINOPHEN
     Dosage: UNK
     Route: 065
  5. RASBURICASE [Concomitant]
     Active Substance: RASBURICASE
     Indication: HYPERURICAEMIA
     Dosage: UNK
     Route: 065
     Dates: start: 20201222, end: 20201222
  6. ALLOPURINOL. [Suspect]
     Active Substance: ALLOPURINOL
     Indication: HYPERURICAEMIA
     Dosage: 100 MILLIGRAM
     Route: 048
  7. MORPHIN HCL [Concomitant]
     Active Substance: MORPHINE HYDROCHLORIDE
     Dosage: UNK
     Route: 065

REACTIONS (5)
  - Multiple organ dysfunction syndrome [Fatal]
  - Sepsis [Fatal]
  - Leukopenia [Fatal]
  - Toxic epidermal necrolysis [Fatal]
  - Pyrexia [Fatal]

NARRATIVE: CASE EVENT DATE: 20201226
